FAERS Safety Report 6756436-7 (Version None)
Quarter: 2010Q2

REPORT INFORMATION
  Report Type: 
  Country: None (occurrence: None)
  Receive Date: 20100604
  Receipt Date: 20100528
  Transmission Date: 20101027
  Serious: Yes (Life-Threatening, Other)
  Sender: FDA-Public Use
  Company Number: A0861997A

PATIENT
  Age: 18 Year
  Sex: Female

DRUGS (3)
  1. LAMICTAL [Suspect]
     Indication: DEPRESSION
     Route: 048
     Dates: end: 20100525
  2. LORTAB [Suspect]
     Indication: DRUG USE FOR UNKNOWN INDICATION
     Route: 065
     Dates: start: 20100526
  3. AZITHROMYCIN [Concomitant]
     Dates: start: 20100526

REACTIONS (5)
  - ANXIETY [None]
  - DRUG INTERACTION [None]
  - FEELING ABNORMAL [None]
  - INSOMNIA [None]
  - PRURITUS [None]
